FAERS Safety Report 19548394 (Version 1)
Quarter: 2021Q3

REPORT INFORMATION
  Report Type: Spontaneous
  Country: JP (occurrence: JP)
  Receive Date: 20210714
  Receipt Date: 20210714
  Transmission Date: 20211014
  Serious: No
  Sender: FDA-Public Use
  Company Number: JP-LUPIN PHARMACEUTICALS INC.-2021-11466

PATIENT
  Age: 67 Year
  Sex: Female

DRUGS (23)
  1. PROCARBAZINE HCL [Concomitant]
     Active Substance: PROCARBAZINE HYDROCHLORIDE
     Indication: CENTRAL NERVOUS SYSTEM LYMPHOMA
     Dosage: 100 MILLIGRAM/SQ. METER
     Route: 065
  2. LEVOFLOXACIN. [Interacting]
     Active Substance: LEVOFLOXACIN
     Dosage: 500 MILLIGRAM, QD
     Route: 042
  3. GRANISETRON HYDROCHLORIDE. [Concomitant]
     Active Substance: GRANISETRON HYDROCHLORIDE
     Indication: PROPHYLAXIS
     Dosage: UNK
     Route: 065
  4. LEUCOVORIN. [Concomitant]
     Active Substance: LEUCOVORIN
     Dosage: 40 MILLIGRAM
     Route: 042
  5. LEVOFLOXACIN. [Suspect]
     Active Substance: LEVOFLOXACIN
     Indication: URINARY TRACT INFECTION
     Dosage: UNK
     Route: 048
  6. PERAMPANEL [Concomitant]
     Active Substance: PERAMPANEL
     Indication: SEIZURE
     Dosage: UNK, ON DAY 15
     Route: 065
  7. METHOTREXATE. [Interacting]
     Active Substance: METHOTREXATE
     Indication: CENTRAL NERVOUS SYSTEM LYMPHOMA
     Dosage: UNK, HIGH DOSE OF 3.5G/M2 OVER 2 HOURS; RECEIVED 5 INFUSION ON DAY 1
     Route: 065
  8. METHOTREXATE. [Interacting]
     Active Substance: METHOTREXATE
     Dosage: UNK, HIGH DOSE OF 3.5G/M2 OVER 2 HOURS; RECEIVED 5 INFUSION ON DAY 29
     Route: 065
  9. FAMOTIDINE. [Concomitant]
     Active Substance: FAMOTIDINE
     Indication: PRODUCT USED FOR UNKNOWN INDICATION
     Dosage: UNK
     Route: 065
  10. SODIUM BICARBONATE. [Concomitant]
     Active Substance: SODIUM BICARBONATE
     Dosage: 160 MILLIEQUIVALENT, QD
     Route: 065
  11. LACOSAMIDE. [Concomitant]
     Active Substance: LACOSAMIDE
     Indication: PRODUCT USED FOR UNKNOWN INDICATION
     Dosage: UNK, ON DAY 16
     Route: 065
  12. BETAMETHASONE. [Concomitant]
     Active Substance: BETAMETHASONE
     Indication: RASH
     Dosage: UNK, ON DAY 10; FOR 5 DAYS
     Route: 048
  13. LEVETIRACETAM. [Interacting]
     Active Substance: LEVETIRACETAM
     Indication: SEIZURE
     Dosage: UNK
     Route: 065
  14. METHOTREXATE. [Interacting]
     Active Substance: METHOTREXATE
     Dosage: UNK, HIGH DOSE OF 3.5G/M2 OVER 2 HOURS; RECEIVED 5 INFUSION ON DAY 71
     Route: 065
  15. APREPITANT. [Concomitant]
     Active Substance: APREPITANT
     Indication: PROPHYLAXIS
     Dosage: UNK
     Route: 065
  16. METHOTREXATE. [Interacting]
     Active Substance: METHOTREXATE
     Dosage: UNK, HIGH DOSE OF 3.5G/M2 OVER 2 HOURS; RECEIVED 5 INFUSION ON DAY 43
     Route: 065
  17. QUETIAPINE FUMARATE. [Concomitant]
     Active Substance: QUETIAPINE FUMARATE
     Indication: PRODUCT USED FOR UNKNOWN INDICATION
     Dosage: UNK, ON DAY 16
     Route: 065
  18. LEUCOVORIN. [Concomitant]
     Active Substance: LEUCOVORIN
     Indication: PROPHYLAXIS
     Dosage: 21 MILLIGRAM, ON DAY 2
     Route: 042
  19. METHOTREXATE. [Interacting]
     Active Substance: METHOTREXATE
     Dosage: UNK, HIGH DOSE OF 3.5G/M2 OVER 2 HOURS; RECEIVED 5 INFUSION ON DAY 15
     Route: 065
  20. LEVOTHYROXINE. [Concomitant]
     Active Substance: LEVOTHYROXINE
     Indication: HORMONE REPLACEMENT THERAPY
     Dosage: UNK
     Route: 065
  21. VINCRISTINE [Concomitant]
     Active Substance: VINCRISTINE
     Indication: CENTRAL NERVOUS SYSTEM LYMPHOMA
     Dosage: 1.4 MILLIGRAM/SQ. METER, MAXIMUM DOSE; FOR 10 MINUTES
     Route: 042
  22. BETAMETHASONE. [Concomitant]
     Active Substance: BETAMETHASONE
     Dosage: UNK, ON DAY 17
     Route: 048
  23. SODIUM BICARBONATE. [Concomitant]
     Active Substance: SODIUM BICARBONATE
     Indication: URINE ALKALINISATION THERAPY
     Dosage: 100 MILLIEQUIVALENT, QD
     Route: 065

REACTIONS (2)
  - Drug clearance decreased [Recovered/Resolved]
  - Drug interaction [Unknown]
